FAERS Safety Report 9052718 (Version 1)
Quarter: 2013Q1

REPORT INFORMATION
  Report Type: Report from Study
  Country: RU (occurrence: RU)
  Receive Date: 20130207
  Receipt Date: 20130207
  Transmission Date: 20140127
  Serious: Yes (Death, Other)
  Sender: FDA-Public Use
  Company Number: RU-ROCHE-1186788

PATIENT
  Sex: Female

DRUGS (1)
  1. HERCEPTIN [Suspect]
     Indication: BREAST CANCER
     Route: 065

REACTIONS (5)
  - Death [Fatal]
  - Disease progression [Unknown]
  - Breast cancer recurrent [Unknown]
  - Drug intolerance [Unknown]
  - Cardiotoxicity [Unknown]
